FAERS Safety Report 20621197 (Version 1)
Quarter: 2022Q1

REPORT INFORMATION
  Report Type: Report from Study
  Country: US (occurrence: US)
  Receive Date: 20220322
  Receipt Date: 20220322
  Transmission Date: 20220424
  Serious: Yes (Hospitalization, Other)
  Sender: FDA-Public Use
  Company Number: US-HBP-2022US025348

PATIENT
  Age: 91 Year
  Sex: Female

DRUGS (3)
  1. VALCHLOR [Suspect]
     Active Substance: MECHLORETHAMINE
     Indication: Cutaneous T-cell lymphoma
     Dosage: THIN FILM, QD
     Route: 061
  2. TRIAMCINOLONE ACETONIDE [Concomitant]
     Active Substance: TRIAMCINOLONE ACETONIDE
     Dosage: UNK, UNKNOWN
     Route: 065
  3. CLOBETASOL PROPIONATE E [Concomitant]
     Dosage: UNK, UNKNOWN
     Route: 065

REACTIONS (4)
  - Malignant neoplasm progression [Recovering/Resolving]
  - Heart valve replacement [Unknown]
  - Skin ulcer [Recovering/Resolving]
  - Skin weeping [Recovering/Resolving]

NARRATIVE: CASE EVENT DATE: 20220123
